FAERS Safety Report 7372341-X (Version None)
Quarter: 2011Q1

REPORT INFORMATION
  Report Type: 
  Country: None (occurrence: None)
  Receive Date: 20110324
  Receipt Date: 20110317
  Transmission Date: 20110831
  Serious: Yes (Other)
  Sender: FDA-Public Use
  Company Number: B0707263A

PATIENT
  Sex: Female
  Weight: 58 kg

DRUGS (6)
  1. TYKERB [Suspect]
     Indication: BREAST CANCER
     Dosage: 1250MG PER DAY
     Route: 048
     Dates: start: 20100726, end: 20100915
  2. XELODA [Suspect]
     Dosage: 2400MG PER DAY
     Route: 048
     Dates: start: 20100726, end: 20100802
  3. TYKERB [Suspect]
     Dosage: 1250MG PER DAY
     Route: 048
     Dates: start: 20100921
  4. XELODA [Suspect]
     Dosage: 2400MG PER DAY
     Route: 048
     Dates: start: 20100823
  5. VINORELBINE TARTRATE [Suspect]
     Indication: BREAST CANCER
     Dosage: 40MG PER DAY
     Route: 042
     Dates: start: 20100510, end: 20101115
  6. GEMCITABINE [Concomitant]
     Indication: BREAST CANCER
     Dosage: 1400MG PER DAY
     Route: 042
     Dates: start: 20101206

REACTIONS (1)
  - WHITE BLOOD CELL COUNT DECREASED [None]
